FAERS Safety Report 5888923-8 (Version None)
Quarter: 2008Q3

REPORT INFORMATION
  Report Type: 
  Country: None (occurrence: None)
  Receive Date: 20080919
  Receipt Date: 20080908
  Transmission Date: 20090109
  Serious: Yes (Other)
  Sender: FDA-Public Use
  Company Number: US-WYE-H05908508

PATIENT
  Age: 69 Year
  Sex: Female

DRUGS (2)
  1. PREMPRO [Suspect]
     Indication: HORMONE REPLACEMENT THERAPY
     Dosage: 0.625/2.5MG
     Route: 048
  2. PREMPRO [Suspect]
     Dosage: 0.45/1.5 MG
     Route: 048

REACTIONS (2)
  - MULTIPLE MYELOMA [None]
  - THERAPEUTIC RESPONSE UNEXPECTED [None]
